FAERS Safety Report 24598555 (Version 2)
Quarter: 2024Q4

REPORT INFORMATION
  Report Type: Spontaneous
  Country: US (occurrence: US)
  Receive Date: 20241110
  Receipt Date: 20241218
  Transmission Date: 20250115
  Serious: Yes (Hospitalization)
  Sender: SANOFI AVENTIS
  Company Number: US-SA-2024SA311598

PATIENT
  Age: 70 Year
  Sex: Female

DRUGS (1)
  1. DUPIXENT [Suspect]
     Active Substance: DUPILUMAB
     Indication: Dermatitis atopic
     Dosage: 300 MG, QOW
     Route: 058
     Dates: start: 2022, end: 20241203

REACTIONS (10)
  - Surgery [Unknown]
  - Rash pruritic [Unknown]
  - Rosacea [Not Recovered/Not Resolved]
  - Dry skin [Unknown]
  - Sleep disorder [Not Recovered/Not Resolved]
  - Skin fissures [Unknown]
  - Skin weeping [Unknown]
  - Urticaria [Unknown]
  - Skin exfoliation [Unknown]
  - Rash [Not Recovered/Not Resolved]
